FAERS Safety Report 6589437-2 (Version None)
Quarter: 2010Q1

REPORT INFORMATION
  Report Type: 
  Country: None (occurrence: None)
  Receive Date: 20100218
  Receipt Date: 20100208
  Transmission Date: 20100710
  Serious: Yes (Hospitalization)
  Sender: FDA-Public Use
  Company Number: US-BAXTER-2009BH015699

PATIENT
  Age: 74 Year
  Sex: Male

DRUGS (4)
  1. DIANEAL [Suspect]
     Indication: PERITONEAL DIALYSIS
     Route: 033
     Dates: start: 20090706
  2. DIANEAL [Suspect]
     Route: 033
     Dates: start: 20090629, end: 20090706
  3. DIANEAL [Suspect]
     Indication: PERITONEAL DIALYSIS
     Route: 033
     Dates: start: 20090706
  4. DIANEAL [Suspect]
     Route: 033
     Dates: start: 20090629, end: 20090706

REACTIONS (3)
  - DYSGEUSIA [None]
  - HALLUCINATION [None]
  - PERITONEAL DIALYSIS COMPLICATION [None]
